FAERS Safety Report 4514477-4 (Version None)
Quarter: 2004Q4

REPORT INFORMATION
  Report Type: 
  Country: None (occurrence: None)
  Receive Date: 20040928
  Receipt Date: 20040715
  Transmission Date: 20050328
  Serious: No
  Sender: FDA-Public Use
  Company Number: 04P-163-0267211-00

PATIENT
  Age: 52 Year
  Sex: Female
  Weight: 57.6068 kg

DRUGS (7)
  1. HUMIRA [Suspect]
     Indication: RHEUMATOID ARTHRITIS
     Dosage: 40 MG, SUBCUTANEOUS
     Route: 058
     Dates: start: 20040608
  2. BUCINDOLOL HYDROCHLORIDE [Concomitant]
  3. METHOTREXATE SODIUM [Concomitant]
  4. CALCIUM [Concomitant]
  5. ALENDRONATE SODIUM [Concomitant]
  6. ESOMEPRAZOLE [Concomitant]
  7. FOLGARD [Concomitant]

REACTIONS (4)
  - ASTHENIA [None]
  - CONDITION AGGRAVATED [None]
  - JOINT SWELLING [None]
  - TREMOR [None]
